FAERS Safety Report 6730271-8 (Version None)
Quarter: 2010Q2

REPORT INFORMATION
  Report Type: 
  Country: None (occurrence: None)
  Receive Date: 20100518
  Receipt Date: 20100512
  Transmission Date: 20101027
  Serious: Yes (Life-Threatening)
  Sender: FDA-Public Use
  Company Number: JP-ROCHE-672897

PATIENT
  Sex: Male

DRUGS (6)
  1. TOCILIZUMAB [Suspect]
     Indication: RHEUMATOID ARTHRITIS
     Route: 041
     Dates: start: 20090825, end: 20090825
  2. TOCILIZUMAB [Suspect]
     Route: 041
     Dates: start: 20090925, end: 20090925
  3. TOCILIZUMAB [Suspect]
     Route: 041
     Dates: start: 20091023, end: 20091023
  4. TOCILIZUMAB [Suspect]
     Route: 041
     Dates: start: 20100205, end: 20100205
  5. AZULFIDINE [Concomitant]
     Dosage: FORM: ENTERIC COATING DRUG
     Route: 048
  6. CELCOX [Concomitant]
     Route: 048

REACTIONS (1)
  - LUNG NEOPLASM MALIGNANT [None]
